FAERS Safety Report 15369032 (Version 1)
Quarter: 2018Q3

REPORT INFORMATION
  Report Type: Spontaneous
  Country: US (occurrence: US)
  Receive Date: 20180911
  Receipt Date: 20180911
  Transmission Date: 20181010
  Serious: No
  Sender: FDA-Public Use
  Company Number: US-009507513-1808USA007172

PATIENT
  Age: 56 Year
  Sex: Male

DRUGS (3)
  1. TEMODAR [Suspect]
     Active Substance: TEMOZOLOMIDE
     Indication: PROLACTIN-PRODUCING PITUITARY TUMOUR
     Dosage: 150 MG DAILY FOR 5 CONSECUTIVE DAYS, EVERY 28 DAYS
     Route: 048
  2. CABERGOLINE. [Concomitant]
     Active Substance: CABERGOLINE
     Indication: PROLACTIN-PRODUCING PITUITARY TUMOUR
     Dosage: 1 MG, TIW
  3. CABERGOLINE. [Concomitant]
     Active Substance: CABERGOLINE
     Dosage: 0.5 MG, TIW

REACTIONS (2)
  - Adverse event [Unknown]
  - Product use in unapproved indication [Unknown]
